FAERS Safety Report 5872531-9 (Version None)
Quarter: 2008Q3

REPORT INFORMATION
  Report Type: 
  Country: None (occurrence: None)
  Receive Date: 20080902
  Receipt Date: 20080821
  Transmission Date: 20090109
  Serious: Yes (Death)
  Sender: FDA-Public Use
  Company Number: 2008-03037

PATIENT
  Age: 74 Year
  Sex: Female
  Weight: 62 kg

DRUGS (1)
  1. VELCADE [Suspect]
     Indication: MULTIPLE SCLEROSIS
     Dosage: 2.1 MG UNK, UNKNOWN
     Dates: start: 20080430, end: 20080621

REACTIONS (3)
  - ACUTE CORONARY SYNDROME [None]
  - CIRCULATORY COLLAPSE [None]
  - SHOCK [None]
